FAERS Safety Report 7554543-2 (Version None)
Quarter: 2011Q2

REPORT INFORMATION
  Report Type: 
  Country: None (occurrence: None)
  Receive Date: 20110617
  Receipt Date: 20110609
  Transmission Date: 20111010
  Serious: Yes (Hospitalization)
  Sender: FDA-Public Use
  Company Number: FR-ROCHE-781743

PATIENT
  Sex: Female
  Weight: 65.5 kg

DRUGS (5)
  1. PACLITAXEL [Suspect]
     Indication: OVARIAN CANCER
     Dosage: LAST DOSE PRIOR TO SAE:19 MAY 2011
     Route: 042
     Dates: start: 20110407
  2. CARBOPLATIN [Suspect]
     Indication: OVARIAN CANCER
     Dosage: LAST DOSE PRIOR TO SAE:19 MAY 2011
     Route: 042
     Dates: start: 20110407
  3. KARDEGIC [Concomitant]
     Dates: start: 20110527
  4. ATORVASTATIN CALCIUM [Concomitant]
     Dates: start: 20110527
  5. BEVACIZUMAB [Suspect]
     Indication: OVARIAN CANCER
     Dosage: LAST DOSE PRIOR TO SAE: 19 MAY 2010
     Route: 042
     Dates: start: 20110426

REACTIONS (1)
  - TACHYCARDIA [None]
